FAERS Safety Report 8877404 (Version 1)
Quarter: 2012Q4

REPORT INFORMATION
  Report Type: Spontaneous
  Country: US (occurrence: None)
  Receive Date: 20121026
  Receipt Date: 20121026
  Transmission Date: 20130627
  Serious: Yes (Hospitalization)
  Sender: FDA-Public Use
  Company Number: TPA2012A08063

PATIENT
  Age: 49 Year
  Sex: Male

DRUGS (4)
  1. LANSOPRAZOLE [Suspect]
     Indication: GASTROESOPHAGEAL REFLUX DISEASE
  2. LANSOPRAZOLE [Suspect]
     Indication: HELICOBACTER PYLORI GASTRITIS
  3. AMOXYCILLIN [Suspect]
  4. CLARITHROMYCIN (CLARITHROMYCIN) [Suspect]

REACTIONS (2)
  - Transient psychosis [None]
  - Sinus tachycardia [None]
